FAERS Safety Report 5422062-5 (Version None)
Quarter: 2007Q3

REPORT INFORMATION
  Report Type: 
  Country: None (occurrence: None)
  Receive Date: 20070821
  Receipt Date: 20070821
  Transmission Date: 20080115
  Serious: Yes (Life-Threatening, Hospitalization)
  Sender: FDA-Public Use
  Company Number: None

PATIENT
  Age: 70 Year
  Sex: Male
  Weight: 96.1626 kg

DRUGS (2)
  1. HYDROCHLOROTHIAZIDE [Suspect]
     Indication: HYPERTENSION
     Dosage: 25MG AM PO
     Route: 048
     Dates: start: 20040407, end: 20070708
  2. POLYETHYLENE GLYCOL 3350 [Suspect]
     Indication: GASTROINTESTINAL DISORDER THERAPY
     Dosage: 4 LITERS ONCE PO
     Route: 048
     Dates: start: 20070702, end: 20070702

REACTIONS (3)
  - ATRIAL FIBRILLATION [None]
  - ELECTROLYTE IMBALANCE [None]
  - PALPITATIONS [None]
